FAERS Safety Report 25581955 (Version 1)
Quarter: 2025Q3

REPORT INFORMATION
  Report Type: Spontaneous
  Country: JP (occurrence: JP)
  Receive Date: 20250719
  Receipt Date: 20250719
  Transmission Date: 20251020
  Serious: Yes (Hospitalization)
  Sender: MACLEODS
  Company Number: JP-MACLEODS PHARMA-MAC2025054117

PATIENT

DRUGS (7)
  1. SACUBITRIL\VALSARTAN [Suspect]
     Active Substance: SACUBITRIL\VALSARTAN
     Indication: Hypertension
     Route: 065
  2. METFORMIN [Concomitant]
     Active Substance: METFORMIN HYDROCHLORIDE
     Indication: Type 2 diabetes mellitus
     Route: 065
  3. LINAGLIPTIN [Concomitant]
     Active Substance: LINAGLIPTIN
     Indication: Type 2 diabetes mellitus
     Route: 065
  4. NIFEDIPINE [Concomitant]
     Active Substance: NIFEDIPINE
     Indication: Hypertension
     Route: 065
  5. CARVEDILOL [Concomitant]
     Active Substance: CARVEDILOL
     Indication: Hypertension
     Route: 065
  6. IMEGLIMIN [Concomitant]
     Active Substance: IMEGLIMIN
     Indication: Type 2 diabetes mellitus
     Route: 065
  7. IMEGLIMIN [Concomitant]
     Active Substance: IMEGLIMIN
     Route: 065

REACTIONS (1)
  - Insulin C-peptide increased [Recovering/Resolving]
